FAERS Safety Report 18474221 (Version 3)
Quarter: 2020Q4

REPORT INFORMATION
  Report Type: Spontaneous
  Country: US (occurrence: US)
  Receive Date: 20201106
  Receipt Date: 20201208
  Transmission Date: 20210114
  Serious: No
  Sender: FDA-Public Use
  Company Number: US-PFIZER INC-2020428740

PATIENT
  Age: 53 Year
  Sex: Female

DRUGS (2)
  1. SUTENT [Suspect]
     Active Substance: SUNITINIB MALATE
     Indication: RENAL CANCER
     Dosage: 25 MG, CYCLIC  (ONE CAPSULE DAILY FOR 10 DAYS, REST 5 DAYS AND REPEAT CYCLE EACH MONTH)
     Route: 048
     Dates: start: 20201005, end: 2020
  2. SUTENT [Suspect]
     Active Substance: SUNITINIB MALATE
     Dosage: 25 MG, CYCLIC (ONE CAPSULE DAILY FOR 10 DAYS, REST 5 DAYS AND REPEAT CYCLE EACH MONTH)
     Route: 048
     Dates: start: 202011

REACTIONS (6)
  - Constipation [Unknown]
  - Stomatitis [Unknown]
  - Muscle spasms [Unknown]
  - Dry skin [Unknown]
  - Back pain [Unknown]
  - Flatulence [Unknown]
